FAERS Safety Report 4744153-4 (Version None)
Quarter: 2005Q3

REPORT INFORMATION
  Report Type: 
  Country: None (occurrence: None)
  Receive Date: 20050809
  Receipt Date: 20050729
  Transmission Date: 20060218
  Serious: Yes (Hospitalization, Other)
  Sender: FDA-Public Use
  Company Number: KII-2005-0017819

PATIENT
  Age: 1 Year
  Sex: Male

DRUGS (1)
  1. MORPHINE SULFATE [Suspect]

REACTIONS (5)
  - ACCIDENTAL DRUG INTAKE BY CHILD [None]
  - DEPRESSED LEVEL OF CONSCIOUSNESS [None]
  - PERIPHERAL COLDNESS [None]
  - SEDATION [None]
  - TACHYCARDIA [None]
